FAERS Safety Report 5875424-6 (Version None)
Quarter: 2008Q3

REPORT INFORMATION
  Report Type: 
  Country: None (occurrence: None)
  Receive Date: 20080909
  Receipt Date: 20080903
  Transmission Date: 20090109
  Serious: Yes (Hospitalization, Other)
  Sender: FDA-Public Use
  Company Number: US-AMGEN-US303131

PATIENT
  Sex: Female

DRUGS (2)
  1. PROCRIT [Suspect]
     Indication: RENAL FAILURE CHRONIC
     Dates: start: 20070101
  2. INSULIN [Concomitant]

REACTIONS (7)
  - FALL [None]
  - HALLUCINATION [None]
  - HIP FRACTURE [None]
  - INFLUENZA [None]
  - MEDICATION ERROR [None]
  - PELVIC FRACTURE [None]
  - PNEUMONIA [None]
